FAERS Safety Report 18063717 (Version 1)
Quarter: 2020Q3

REPORT INFORMATION
  Report Type: Spontaneous
  Country: US (occurrence: US)
  Receive Date: 20200724
  Receipt Date: 20200724
  Transmission Date: 20201103
  Serious: No
  Sender: FDA-Public Use
  Company Number: US-LUPIN PHARMACEUTICALS INC.-2020-02850

PATIENT

DRUGS (1)
  1. CLOBAZAM ORAL SUSPENSION, 2.5 MG/ML [Suspect]
     Active Substance: CLOBAZAM
     Indication: EPILEPSY
     Dosage: UNK
     Route: 065

REACTIONS (4)
  - Syringe issue [Unknown]
  - Incorrect dose administered by product [Unknown]
  - Product quality issue [Unknown]
  - Wrong technique in product usage process [Unknown]
